FAERS Safety Report 9303394 (Version 1)
Quarter: 2013Q2

REPORT INFORMATION
  Report Type: Spontaneous
  Country: US (occurrence: None)
  Receive Date: 20130521
  Receipt Date: 20130521
  Transmission Date: 20140414
  Serious: Yes (Other)
  Sender: FDA-Public Use
  Company Number: None

PATIENT
  Age: 83 Year
  Sex: Female
  Weight: 84.82 kg

DRUGS (2)
  1. JANUVIA [Suspect]
     Route: 048
     Dates: start: 2009, end: 20120813
  2. VICTOZA [Suspect]
     Dosage: 0.6-1.2 MG, DAILY, SQ
     Route: 058
     Dates: start: 201007, end: 201008

REACTIONS (1)
  - Adenocarcinoma pancreas [None]
